FAERS Safety Report 21854638 (Version 1)
Quarter: 2023Q1

REPORT INFORMATION
  Report Type: Spontaneous
  Country: US (occurrence: US)
  Receive Date: 20230112
  Receipt Date: 20230112
  Transmission Date: 20230418
  Serious: No
  Sender: FDA-Public Use
  Company Number: US-PERRIGO-22US006323

PATIENT
  Age: 16 Year
  Sex: Male
  Weight: 68.027 kg

DRUGS (2)
  1. IBUPROFEN [Suspect]
     Active Substance: IBUPROFEN
     Indication: Pain
     Dosage: 600 MG, SINGLE
     Route: 048
     Dates: start: 20220323, end: 20220323
  2. IBUPROFEN [Suspect]
     Active Substance: IBUPROFEN
     Dosage: 600 MG, SINGLE
     Route: 048
     Dates: start: 20220426, end: 20220426

REACTIONS (2)
  - Urticaria [Recovered/Resolved]
  - Incorrect dose administered [Recovered/Resolved]

NARRATIVE: CASE EVENT DATE: 20220323
